FAERS Safety Report 4320405-7 (Version None)
Quarter: 2004Q1

REPORT INFORMATION
  Report Type: 
  Country: None (occurrence: None)
  Receive Date: 20040322
  Receipt Date: 20040206
  Transmission Date: 20041129
  Serious: Yes (Disabling, Other)
  Sender: FDA-Public Use
  Company Number: 200411855GDDC

PATIENT
  Age: 54 Year
  Sex: Female

DRUGS (4)
  1. ARAVA [Suspect]
     Indication: RHEUMATOID ARTHRITIS
     Route: 048
     Dates: start: 20000101, end: 20031201
  2. DICLOFENAC SODIUM [Concomitant]
     Indication: RHEUMATOID ARTHRITIS
     Dosage: DOSE: UNK
  3. COPROXAMOL [Concomitant]
     Dosage: DOSE: UNK
  4. FOSAMAX [Concomitant]
     Dosage: DOSE: UNK

REACTIONS (3)
  - CORNEAL ULCER [None]
  - DIARRHOEA [None]
  - RETINAL DISORDER [None]
